FAERS Safety Report 9284180 (Version 2)
Quarter: 2013Q2

REPORT INFORMATION
  Report Type: Spontaneous
  Country: CO (occurrence: CO)
  Receive Date: 20130510
  Receipt Date: 20130522
  Transmission Date: 20140414
  Serious: Yes (Other)
  Sender: FDA-Public Use
  Company Number: CO-VERTEX PHARMACEUTICALS INC-2013-004384

PATIENT
  Age: 54 Year
  Sex: Male
  Weight: 114 kg

DRUGS (3)
  1. INCIVO [Suspect]
     Indication: HEPATITIS C
     Dosage: 750 MG, TID
     Route: 048
     Dates: start: 20130323
  2. PEGYLATED INTERFERON [Concomitant]
     Indication: HEPATITIS C
     Dosage: DOSAGE FORM: AMP SC.
     Route: 058
     Dates: start: 20130323
  3. RIBAVIRIN [Concomitant]
     Indication: HEPATITIS C
     Dosage: DOSAGE FORM: TABLET, (SPLIT IN TWO DAILY INTAKES)
     Route: 048
     Dates: start: 20130323

REACTIONS (8)
  - Arrhythmia [Unknown]
  - Haemoglobin decreased [Unknown]
  - Insomnia [Unknown]
  - Gastrooesophageal reflux disease [Unknown]
  - Cough [Not Recovered/Not Resolved]
  - Asthenia [Unknown]
  - Bone pain [Unknown]
  - Nasal congestion [Unknown]
